FAERS Safety Report 13687834 (Version 1)
Quarter: 2017Q2

REPORT INFORMATION
  Report Type: Spontaneous
  Country: US (occurrence: US)
  Receive Date: 20170623
  Receipt Date: 20170623
  Transmission Date: 20170830
  Serious: Yes (Disabling, Other)
  Sender: FDA-Public Use
  Company Number: None

PATIENT
  Age: 48 Year
  Sex: Female
  Weight: 85.5 kg

DRUGS (5)
  1. REMERON [Concomitant]
     Active Substance: MIRTAZAPINE
  2. MAGNESIUM [Concomitant]
     Active Substance: MAGNESIUM
  3. MELATONIN [Concomitant]
     Active Substance: MELATONIN
  4. CLONAZEPAM. [Suspect]
     Active Substance: CLONAZEPAM
     Indication: INSOMNIA
     Dosage: ?          QUANTITY:30 TABLET(S);?
     Route: 048
  5. KLONOPIN [Concomitant]
     Active Substance: CLONAZEPAM

REACTIONS (6)
  - Suicidal ideation [None]
  - Anxiety [None]
  - Withdrawal syndrome [None]
  - Irritable bowel syndrome [None]
  - Impaired work ability [None]
  - Depression [None]

NARRATIVE: CASE EVENT DATE: 20170221
